FAERS Safety Report 5194420-8 (Version None)
Quarter: 2006Q4

REPORT INFORMATION
  Report Type: 
  Country: None (occurrence: None)
  Receive Date: 20061222
  Receipt Date: 20061214
  Transmission Date: 20070319
  Serious: Yes (Hospitalization)
  Sender: FDA-Public Use
  Company Number: 230339M06USA

PATIENT
  Age: 27 Year
  Sex: Female
  Weight: 61.2356 kg

DRUGS (3)
  1. REBIF [Suspect]
     Indication: MULTIPLE SCLEROSIS
     Dosage: 44 MGC, 3 IN 1 WEEKS, SUBCUTANEOUS
     Route: 058
     Dates: start: 20060719, end: 20060901
  2. HYDROCODONE BITARTRATE [Concomitant]
  3. SOMA [Concomitant]

REACTIONS (6)
  - ANXIETY [None]
  - DEPRESSION [None]
  - INFLUENZA LIKE ILLNESS [None]
  - INTENTIONAL SELF-INJURY [None]
  - PANIC ATTACK [None]
  - SUICIDAL IDEATION [None]
